FAERS Safety Report 6161512-6 (Version None)
Quarter: 2009Q2

REPORT INFORMATION
  Report Type: 
  Country: None (occurrence: None)
  Receive Date: 20090421
  Receipt Date: 20090415
  Transmission Date: 20091009
  Serious: Yes (Other)
  Sender: FDA-Public Use
  Company Number: PHEH2009US03804

PATIENT
  Age: 16 Year
  Sex: Female

DRUGS (3)
  1. TEGRETOL [Suspect]
     Dosage: UNK
     Route: 048
  2. TEGRETOL [Suspect]
     Dosage: UNK
     Route: 048
  3. CARBAMAZEPINE [Suspect]
     Dosage: UNK
     Route: 048

REACTIONS (1)
  - DRUG TOXICITY [None]
